FAERS Safety Report 15295556 (Version 3)
Quarter: 2018Q4

REPORT INFORMATION
  Report Type: Spontaneous
  Country: AT (occurrence: AT)
  Receive Date: 20180820
  Receipt Date: 20181026
  Transmission Date: 20190204
  Serious: Yes (Other)
  Sender: FDA-Public Use
  Company Number: PHHY2018AT074164

PATIENT
  Age: 28 Year
  Sex: Female
  Weight: 65 kg

DRUGS (75)
  1. CITALOPRAM [Suspect]
     Active Substance: CITALOPRAM HYDROBROMIDE
     Indication: PRODUCT USED FOR UNKNOWN INDICATION
     Dosage: 10 MG, QD
     Route: 065
     Dates: start: 20161223, end: 20161224
  2. ACETYLSALICYLIC ACID [Suspect]
     Active Substance: ASPIRIN
     Dosage: 80 MG, QD
     Route: 065
     Dates: start: 20161220, end: 20161226
  3. ABILIFY [Suspect]
     Active Substance: ARIPIPRAZOLE
     Indication: PRODUCT USED FOR UNKNOWN INDICATION
     Dosage: 5 MG, UNK
     Route: 065
  4. ZOLDEM [Suspect]
     Active Substance: ZOLPIDEM TARTRATE
     Dosage: 10 MG, UNK
     Route: 065
  5. INDERAL [Suspect]
     Active Substance: PROPRANOLOL HYDROCHLORIDE
     Dosage: 10 MG, QD
     Route: 065
     Dates: start: 20161215, end: 20161217
  6. DOMINAL (PROTHIPENDYL HYDROCHLORIDE) [Suspect]
     Active Substance: PROTHIPENDYL HYDROCHLORIDE
     Dosage: 80 MG, UNK
     Route: 065
  7. WELLBUTRIN [Suspect]
     Active Substance: BUPROPION HYDROCHLORIDE
     Dosage: 150 MG, QD
     Route: 065
     Dates: start: 20161227, end: 20170110
  8. DOXAZOSIN [Concomitant]
     Active Substance: DOXAZOSIN\DOXAZOSIN MESYLATE
     Dosage: 2 MG, UNK
     Route: 065
  9. DOXAZOSIN [Concomitant]
     Active Substance: DOXAZOSIN\DOXAZOSIN MESYLATE
     Dosage: 1 MG, UNK
     Route: 065
  10. TEMESTA [LORAZEPAM] [Concomitant]
     Active Substance: LORAZEPAM
     Dosage: 1.5 MG, QD
     Route: 065
     Dates: start: 20161225, end: 20161225
  11. LAMOTRIGIN [Concomitant]
     Active Substance: LAMOTRIGINE
     Indication: PRODUCT USED FOR UNKNOWN INDICATION
     Dosage: 25 MG, QD
     Route: 065
     Dates: start: 201611, end: 20161212
  12. LAMOTRIGIN [Concomitant]
     Active Substance: LAMOTRIGINE
     Dosage: 50 MG, QD
     Route: 065
     Dates: start: 20161213, end: 20161219
  13. CITALOPRAM [Concomitant]
     Active Substance: CITALOPRAM HYDROBROMIDE
     Indication: PRODUCT USED FOR UNKNOWN INDICATION
     Dosage: 10 MG, UNK
     Route: 065
  14. ACETYLSALICYLIC ACID [Suspect]
     Active Substance: ASPIRIN
     Dosage: 40 MG, QD
     Route: 065
     Dates: start: 20161216, end: 20161219
  15. INDERAL [Suspect]
     Active Substance: PROPRANOLOL HYDROCHLORIDE
     Dosage: 10 MG, QD
     Route: 065
     Dates: start: 20170111, end: 20170113
  16. LAMICTAL [Suspect]
     Active Substance: LAMOTRIGINE
     Indication: PRODUCT USED FOR UNKNOWN INDICATION
     Dosage: 50 MG, UNK
     Route: 065
  17. LAMICTAL [Suspect]
     Active Substance: LAMOTRIGINE
     Dosage: 100 MG, UNK
     Route: 065
  18. LAMICTAL [Suspect]
     Active Substance: LAMOTRIGINE
     Dosage: 175 MG, UNK
     Route: 065
  19. LAMICTAL [Suspect]
     Active Substance: LAMOTRIGINE
     Dosage: 225 MG, UNK
     Route: 065
  20. OXAZEPAM. [Suspect]
     Active Substance: OXAZEPAM
     Dosage: 15 MG, QD
     Route: 065
     Dates: start: 20161224
  21. WELLBUTRIN [Suspect]
     Active Substance: BUPROPION HYDROCHLORIDE
     Dosage: 150 MG, UNK
     Route: 065
  22. PRAXITEN [Concomitant]
     Active Substance: OXAZEPAM
     Dosage: 15 MG, UNK
     Route: 065
  23. ACETYLSALICYLIC ACID [Suspect]
     Active Substance: ASPIRIN
     Indication: PRODUCT USED FOR UNKNOWN INDICATION
     Dosage: 80 MG, QD
     Route: 065
     Dates: start: 20161215, end: 20161215
  24. INDERAL [Suspect]
     Active Substance: PROPRANOLOL HYDROCHLORIDE
     Indication: PRODUCT USED FOR UNKNOWN INDICATION
     Dosage: 1 OT, QD
     Route: 065
     Dates: start: 20161208, end: 20161213
  25. INDERAL [Suspect]
     Active Substance: PROPRANOLOL HYDROCHLORIDE
     Dosage: 10 MG, QD
     Route: 065
     Dates: start: 20161220, end: 20161226
  26. LAMICTAL [Suspect]
     Active Substance: LAMOTRIGINE
     Dosage: 25 MG, UNK
     Route: 065
  27. PROTHIPENDYL HYDROCHLORIDE [Suspect]
     Active Substance: PROTHIPENDYL HYDROCHLORIDE
     Indication: PRODUCT USED FOR UNKNOWN INDICATION
     Dosage: 80 MG, UNK
     Route: 065
  28. WELLBUTRIN [Suspect]
     Active Substance: BUPROPION HYDROCHLORIDE
     Dosage: 150 MG, QD
     Route: 065
     Dates: start: 20170118
  29. TEMESTA [LORAZEPAM] [Concomitant]
     Active Substance: LORAZEPAM
     Indication: PRODUCT USED FOR UNKNOWN INDICATION
     Dosage: 1 MG, QD
     Route: 065
     Dates: start: 20161223, end: 20161224
  30. TEMESTA [LORAZEPAM] [Concomitant]
     Active Substance: LORAZEPAM
     Dosage: 1 MG, UNK
     Route: 065
  31. TEMESTA [LORAZEPAM] [Concomitant]
     Active Substance: LORAZEPAM
     Dosage: 0.5 MG, UNK
     Route: 065
  32. TEMESTA [LORAZEPAM] [Concomitant]
     Active Substance: LORAZEPAM
     Dosage: 1.5 MG, UNK
     Route: 065
  33. CITALOPRAM [Suspect]
     Active Substance: CITALOPRAM HYDROBROMIDE
     Dosage: 20 MG, QD
     Route: 065
     Dates: start: 20161225, end: 20161225
  34. LAMICTAL [Suspect]
     Active Substance: LAMOTRIGINE
     Dosage: 125 MG, UNK
     Route: 065
  35. DOMINAL (PROTHIPENDYL HYDROCHLORIDE) [Suspect]
     Active Substance: PROTHIPENDYL HYDROCHLORIDE
     Indication: PRODUCT USED FOR UNKNOWN INDICATION
     Dosage: 40 MG, UNK
     Route: 065
  36. OXAZEPAM. [Suspect]
     Active Substance: OXAZEPAM
     Dosage: 15 MG, UNK
     Route: 065
  37. WELLBUTRIN [Suspect]
     Active Substance: BUPROPION HYDROCHLORIDE
     Dosage: 150 MG, UNK
     Route: 065
  38. DOXAZOSIN [Concomitant]
     Active Substance: DOXAZOSIN\DOXAZOSIN MESYLATE
     Dosage: 2 MG, QD
     Route: 065
     Dates: start: 20170108
  39. TEMESTA [LORAZEPAM] [Concomitant]
     Active Substance: LORAZEPAM
     Dosage: 1 MG, UNK
     Route: 065
  40. LAMOTRIGIN [Concomitant]
     Active Substance: LAMOTRIGINE
     Dosage: 200 MG, QD
     Route: 065
     Dates: start: 20170124
  41. INDERAL [Suspect]
     Active Substance: PROPRANOLOL HYDROCHLORIDE
     Dosage: 10 MG, QD
     Route: 065
     Dates: start: 20170113
  42. LAMICTAL [Suspect]
     Active Substance: LAMOTRIGINE
     Dosage: 75 MG, UNK
     Route: 065
  43. LAMICTAL [Suspect]
     Active Substance: LAMOTRIGINE
     Dosage: 200 MG, UNK
     Route: 065
  44. DOXAZOSIN [Concomitant]
     Active Substance: DOXAZOSIN\DOXAZOSIN MESYLATE
     Indication: PRODUCT USED FOR UNKNOWN INDICATION
     Dosage: 2 MG, QD
     Route: 065
     Dates: start: 20161223, end: 20161224
  45. DOXAZOSIN [Concomitant]
     Active Substance: DOXAZOSIN\DOXAZOSIN MESYLATE
     Dosage: 1 MG, UNK
     Route: 065
  46. LAMOTRIGIN [Concomitant]
     Active Substance: LAMOTRIGINE
     Dosage: 125 MG, QD
     Route: 065
     Dates: start: 20170103, end: 20170108
  47. LAMOTRIGIN [Concomitant]
     Active Substance: LAMOTRIGINE
     Dosage: 225 MG, QD
     Route: 065
     Dates: start: 20170109, end: 20170109
  48. VENLAFAXIN HEXAL [Suspect]
     Active Substance: VENLAFAXINE HYDROCHLORIDE
     Indication: PRODUCT USED FOR UNKNOWN INDICATION
     Dosage: 75 MG, UNK
     Route: 065
  49. INDERAL [Suspect]
     Active Substance: PROPRANOLOL HYDROCHLORIDE
     Dosage: 10 MG, QD
     Route: 065
     Dates: start: 20161231, end: 20161231
  50. INDERAL [Suspect]
     Active Substance: PROPRANOLOL HYDROCHLORIDE
     Dosage: 10 MG, UNK
     Route: 065
  51. LAMICTAL [Suspect]
     Active Substance: LAMOTRIGINE
     Dosage: 150 MG, UNK
     Route: 065
  52. WELLBUTRIN [Suspect]
     Active Substance: BUPROPION HYDROCHLORIDE
     Indication: PRODUCT USED FOR UNKNOWN INDICATION
     Dosage: 150 MG, UNK
     Route: 065
     Dates: start: 20161207, end: 20161215
  53. TEMESTA [LORAZEPAM] [Concomitant]
     Active Substance: LORAZEPAM
     Dosage: 1 MG, QD
     Route: 065
     Dates: start: 20161226, end: 20161226
  54. TEMESTA [LORAZEPAM] [Concomitant]
     Active Substance: LORAZEPAM
     Dosage: 0.5 MG, QD
     Route: 065
     Dates: start: 20161227
  55. DOMINAL (PROTHIPENDYL HYDROCHLORIDE) [Suspect]
     Active Substance: PROTHIPENDYL HYDROCHLORIDE
     Dosage: 80 MG, UNK
     Route: 065
  56. PROTHIPENDYL HYDROCHLORIDE [Suspect]
     Active Substance: PROTHIPENDYL HYDROCHLORIDE
     Dosage: 40 MG, UNK
     Route: 065
  57. OXAZEPAM. [Suspect]
     Active Substance: OXAZEPAM
     Dosage: 30 MG, QD
     Route: 065
     Dates: start: 20161221, end: 20161223
  58. OXAZEPAM. [Suspect]
     Active Substance: OXAZEPAM
     Dosage: 15 MG, QD
     Route: 065
     Dates: start: 20161224, end: 20161224
  59. WELLBUTRIN [Suspect]
     Active Substance: BUPROPION HYDROCHLORIDE
     Dosage: 300 MG, QD
     Route: 065
     Dates: start: 20170111, end: 20170117
  60. WELLBUTRIN [Suspect]
     Active Substance: BUPROPION HYDROCHLORIDE
     Dosage: 300 MG, UNK
     Route: 065
  61. LAMOTRIGIN [Concomitant]
     Active Substance: LAMOTRIGINE
     Dosage: 100 MG, QD
     Route: 065
     Dates: start: 20161227, end: 20170102
  62. LAMOTRIGIN [Concomitant]
     Active Substance: LAMOTRIGINE
     Dosage: 175 MG, QD
     Route: 065
     Dates: start: 20170117, end: 20170123
  63. OLEOVIT [Concomitant]
     Indication: PRODUCT USED FOR UNKNOWN INDICATION
     Dosage: 30 GTT, QW
     Route: 065
  64. PRAXITEN [Concomitant]
     Active Substance: OXAZEPAM
     Indication: PRODUCT USED FOR UNKNOWN INDICATION
     Dosage: 30 MG, UNK
     Route: 065
  65. ZOLDEM [Suspect]
     Active Substance: ZOLPIDEM TARTRATE
     Indication: PRODUCT USED FOR UNKNOWN INDICATION
     Dosage: 5 MG, UNK
     Route: 065
  66. INDERAL [Suspect]
     Active Substance: PROPRANOLOL HYDROCHLORIDE
     Dosage: 10-20 MG
     Route: 065
  67. OXAZEPAM. [Suspect]
     Active Substance: OXAZEPAM
     Indication: PRODUCT USED FOR UNKNOWN INDICATION
     Dosage: 15 MG, QD
     Route: 065
     Dates: start: 20161208, end: 20161208
  68. WELLBUTRIN [Suspect]
     Active Substance: BUPROPION HYDROCHLORIDE
     Dosage: 150 MG, UNK
     Route: 065
  69. DOXAZOSIN [Concomitant]
     Active Substance: DOXAZOSIN\DOXAZOSIN MESYLATE
     Dosage: 1 MG, QD
     Route: 065
     Dates: start: 20170103, end: 20170106
  70. DOXAZOSIN [Concomitant]
     Active Substance: DOXAZOSIN\DOXAZOSIN MESYLATE
     Dosage: 2 MG, QD
     Route: 065
     Dates: start: 20170107, end: 20170108
  71. TEMESTA [LORAZEPAM] [Concomitant]
     Active Substance: LORAZEPAM
     Dosage: 0.5 MG, QD
     Route: 065
     Dates: start: 20161227, end: 20161227
  72. LAMOTRIGIN [Concomitant]
     Active Substance: LAMOTRIGINE
     Dosage: 75 MG, QD
     Route: 065
     Dates: start: 20161220, end: 20161226
  73. LAMOTRIGIN [Concomitant]
     Active Substance: LAMOTRIGINE
     Dosage: 150 MG, QD
     Route: 065
     Dates: start: 20170110, end: 20170116
  74. CITALOPRAM [Concomitant]
     Active Substance: CITALOPRAM HYDROBROMIDE
     Dosage: 20 MG, UNK
     Route: 065
  75. FRESUBIN [Concomitant]
     Active Substance: AMINO ACIDS\DEXTROSE\ELECTROLYTES NOS\SOYBEAN OIL\VITAMINS
     Indication: PRODUCT USED FOR UNKNOWN INDICATION
     Dosage: 2 ?G/L, UNK

REACTIONS (4)
  - Visual impairment [Recovered/Resolved]
  - Galactorrhoea [Recovering/Resolving]
  - Visual impairment [Unknown]
  - Nightmare [Unknown]

NARRATIVE: CASE EVENT DATE: 20161215
